FAERS Safety Report 6297767-7 (Version None)
Quarter: 2009Q3

REPORT INFORMATION
  Report Type: 
  Country: None (occurrence: None)
  Receive Date: 20090805
  Receipt Date: 20090724
  Transmission Date: 20100115
  Serious: Yes (Death)
  Sender: FDA-Public Use
  Company Number: PH-PFIZER INC-2008045591

PATIENT
  Age: 12 Year

DRUGS (4)
  1. CEFOPERAZONE SODIUM, SULBACTAM SODIUM [Suspect]
     Dosage: 1.5 G, UNK
     Dates: end: 20080512
  2. TAZOCIN [Concomitant]
  3. CEPIMAX [Concomitant]
  4. MEROPENEM [Concomitant]

REACTIONS (2)
  - ACUTE RESPIRATORY FAILURE [None]
  - METASTASIS [None]
